FAERS Safety Report 4384255-8 (Version None)
Quarter: 2004Q2

REPORT INFORMATION
  Report Type: 
  Country: None (occurrence: None)
  Receive Date: 20040618
  Receipt Date: 20040607
  Transmission Date: 20050107
  Serious: Yes (Hospitalization, Other)
  Sender: FDA-Public Use
  Company Number: HQWYE396609JUN04

PATIENT

DRUGS (1)
  1. AMIODARONE (AMIODARONE, INJECTION) [Suspect]
     Dosage: INTRAVENOUS
     Route: 042

REACTIONS (4)
  - BRADYCARDIA [None]
  - ELECTROCARDIOGRAM T WAVE ABNORMAL [None]
  - HYPOKALAEMIA [None]
  - TORSADE DE POINTES [None]
